FAERS Safety Report 4958374-9 (Version None)
Quarter: 2006Q1

REPORT INFORMATION
  Report Type: 
  Country: None (occurrence: None)
  Receive Date: 20060329
  Receipt Date: 20060329
  Transmission Date: 20060701
  Serious: Yes (Other)
  Sender: FDA-Public Use
  Company Number: None

PATIENT
  Sex: Male
  Weight: 106.5953 kg

DRUGS (1)
  1. CRESTOR [Suspect]
     Indication: BLOOD CHOLESTEROL INCREASED
     Dosage: 1/2 TABLET DDDAILY HS DAILY PO
     Route: 048
     Dates: start: 20040708, end: 20060210

REACTIONS (3)
  - BACK PAIN [None]
  - MUSCLE SPASMS [None]
  - UNEVALUABLE EVENT [None]
